FAERS Safety Report 4661747-5 (Version None)
Quarter: 2005Q2

REPORT INFORMATION
  Report Type: 
  Country: None (occurrence: None)
  Receive Date: 20050513
  Receipt Date: 20050505
  Transmission Date: 20051028
  Serious: Yes (Death, Life-Threatening, Hospitalization)
  Sender: FDA-Public Use
  Company Number: TH-ROCHE-404013

PATIENT
  Age: 56 Year
  Sex: Female

DRUGS (7)
  1. CAPECITABINE [Suspect]
     Indication: BREAST CANCER
     Route: 048
     Dates: start: 20050225, end: 20050301
  2. IXABEPILONE [Suspect]
     Indication: BREAST CANCER
     Route: 042
     Dates: start: 20050225, end: 20050225
  3. MORPHINE [Concomitant]
     Dates: start: 20050227, end: 20050302
  4. AMITRIPTYLINE HCL TAB [Concomitant]
     Dates: start: 20050222, end: 20050302
  5. PARACETAMOL [Concomitant]
     Dates: start: 20050222, end: 20050302
  6. MILK OF MAGNESIA [Concomitant]
     Dates: start: 20050222, end: 20050302
  7. ATIVAN [Concomitant]
     Dates: start: 20050222, end: 20050302

REACTIONS (15)
  - ASPARTATE AMINOTRANSFERASE INCREASED [None]
  - BLOOD ALBUMIN INCREASED [None]
  - BLOOD CREATININE INCREASED [None]
  - BLOOD POTASSIUM INCREASED [None]
  - BLOOD SODIUM DECREASED [None]
  - BLOOD UREA DECREASED [None]
  - BLOOD UREA INCREASED [None]
  - CANCER PAIN [None]
  - CARDIAC ARREST [None]
  - FEBRILE NEUTROPENIA [None]
  - HAEMOGLOBIN DECREASED [None]
  - HYPOVOLAEMIC SHOCK [None]
  - PLATELET COUNT DECREASED [None]
  - RESPIRATORY FAILURE [None]
  - WHITE BLOOD CELL COUNT DECREASED [None]
